FAERS Safety Report 8898942 (Version 1)
Quarter: 2012Q4

REPORT INFORMATION
  Report Type: 
  Country: US (occurrence: US)
  Receive Date: 20121109
  Receipt Date: 20121109
  Transmission Date: 20130627
  Serious: Yes (Other)
  Sender: FDA-Public Use
  Company Number: US-BAYER-2012-116701

PATIENT
  Age: 32 Year
  Sex: Female
  Weight: 105 kg

DRUGS (7)
  1. YASMIN [Suspect]
  2. CLARITIN [Concomitant]
     Dosage: PRN
  3. EPHEDRINE [Concomitant]
  4. MVI [Concomitant]
  5. IBUPROFEN [Concomitant]
     Dosage: PRN
  6. ANTIMIGRAINE PREPARATIONS [Concomitant]
     Indication: MIGRAINE
  7. THYROID PREPARATIONS [Concomitant]
     Dosage: UNK

REACTIONS (1)
  - Deep vein thrombosis [Recovered/Resolved]
